FAERS Safety Report 13918061 (Version 2)
Quarter: 2017Q3

REPORT INFORMATION
  Report Type: Spontaneous
  Country: US (occurrence: US)
  Receive Date: 20170829
  Receipt Date: 20170901
  Transmission Date: 20171127
  Serious: Yes (Death)
  Sender: FDA-Public Use
  Company Number: PHHY2017US126494

PATIENT
  Age: 65 Year
  Sex: Female

DRUGS (2)
  1. ENOXAPARIN [Concomitant]
     Active Substance: ENOXAPARIN
     Indication: PROPHYLAXIS
     Route: 065
  2. HEPARIN [Suspect]
     Active Substance: HEPARIN SODIUM
     Indication: DEEP VEIN THROMBOSIS
     Route: 065

REACTIONS (7)
  - Pulmonary haemorrhage [Fatal]
  - Heparin-induced thrombocytopenia [Fatal]
  - Pulseless electrical activity [Fatal]
  - Pulmonary embolism [Fatal]
  - Right ventricular failure [Fatal]
  - Anaemia [Fatal]
  - Shock haemorrhagic [Fatal]
